FAERS Safety Report 14709580 (Version 1)
Quarter: 2018Q2

REPORT INFORMATION
  Report Type: Spontaneous
  Country: FR (occurrence: FR)
  Receive Date: 20180403
  Receipt Date: 20180403
  Transmission Date: 20180711
  Serious: Yes (Hospitalization)
  Sender: FDA-Public Use
  Company Number: FR-AUROBINDO-AUR-APL-2018-017222

PATIENT
  Age: 74 Year
  Sex: Female

DRUGS (2)
  1. VENLAFAXINE [Suspect]
     Active Substance: VENLAFAXINE HYDROCHLORIDE
     Indication: POISONING DELIBERATE
     Dosage: 75 MG X 14 CP EN PRISE UNIQUE ()
     Route: 048
     Dates: start: 20180223, end: 20180223
  2. LORMETAZEPAM [Suspect]
     Active Substance: LORMETAZEPAM
     Indication: POISONING DELIBERATE
     Dosage: 2 MG X 28 CP EN 1 PRISE UNIQUE ()
     Route: 048
     Dates: start: 20180223, end: 20180223

REACTIONS (4)
  - Miosis [Recovered/Resolved]
  - Confusional state [Recovered/Resolved]
  - Bradypnoea [Recovered/Resolved]
  - Depressed level of consciousness [Recovered/Resolved]

NARRATIVE: CASE EVENT DATE: 20180223
